FAERS Safety Report 20632075 (Version 1)
Quarter: 2022Q1

REPORT INFORMATION
  Report Type: Report from Study
  Country: TW (occurrence: TW)
  Receive Date: 20220324
  Receipt Date: 20220324
  Transmission Date: 20220423
  Serious: Yes (Life-Threatening, Hospitalization)
  Sender: FDA-Public Use
  Company Number: TW-PFIZER INC-202200416682

PATIENT
  Age: 14 Year
  Sex: Female

DRUGS (9)
  1. KETAMINE HYDROCHLORIDE [Suspect]
     Active Substance: KETAMINE HYDROCHLORIDE
     Dosage: UNK
  2. HEROIN [Suspect]
     Active Substance: DIAMORPHINE
     Dosage: UNK
  3. METHAMPHETAMINE HYDROCHLORIDE [Suspect]
     Active Substance: METHAMPHETAMINE HYDROCHLORIDE
     Dosage: UNK
  4. CANNABIS SATIVA SUBSP. INDICA TOP [Suspect]
     Active Substance: CANNABIS SATIVA SUBSP. INDICA TOP
     Dosage: UNK
  5. NITROUS OXIDE [Suspect]
     Active Substance: NITROUS OXIDE
     Dosage: UNK
  6. COFFEE [Suspect]
     Active Substance: ARABICA COFFEE BEAN\COFFEE BEAN
     Dosage: UNK, INSTANT SACHETS
  7. OXYBATE [Suspect]
     Active Substance: OXYBATE
     Dosage: UNK
  8. NITRAZEPAM [Suspect]
     Active Substance: NITRAZEPAM
     Dosage: UNK
  9. 4-METHOXYMETHAMPHETAMINE [Suspect]
     Active Substance: 4-METHOXYMETHAMPHETAMINE
     Dosage: UNK

REACTIONS (6)
  - Suicide attempt [Unknown]
  - Drug abuse [Unknown]
  - Hallucination, auditory [Unknown]
  - Hallucination, visual [Unknown]
  - Aggression [Unknown]
  - Suicidal behaviour [Unknown]
